FAERS Safety Report 20344554 (Version 1)
Quarter: 2022Q1

REPORT INFORMATION
  Report Type: Other
  Country: US (occurrence: None)
  Receive Date: 20220118
  Receipt Date: 20220118
  Transmission Date: 20220424
  Serious: Yes (Hospitalization, Other)
  Sender: FDA-Public Use
  Company Number: US-ROCHE-2996450

PATIENT
  Age: 55 Year
  Sex: Male
  Weight: 77.180 kg

DRUGS (9)
  1. OCREVUS [Suspect]
     Active Substance: OCRELIZUMAB
     Indication: Relapsing multiple sclerosis
     Dosage: 600 MG EVERY 6 MONTHS, DATE OF TREATMENT: 09/JUL/2021.
     Route: 042
     Dates: start: 2014
  2. METOPROLOL [Concomitant]
     Active Substance: METOPROLOL
     Indication: Blood pressure measurement
     Dosage: YES
     Route: 048
     Dates: start: 2019
  3. GABAPENTIN [Concomitant]
     Active Substance: GABAPENTIN
     Indication: Headache
     Route: 048
  4. LATANOPROST [Concomitant]
     Active Substance: LATANOPROST
     Indication: Glaucoma
     Dosage: INSTILL 1 DROP IN EACH EYE AT BEDTIME. ;ONGOING: YES
     Route: 047
     Dates: start: 2021
  5. LATANOPROST [Concomitant]
     Active Substance: LATANOPROST
     Indication: Dry eye
  6. FUROSEMIDE [Concomitant]
     Active Substance: FUROSEMIDE
     Indication: Peripheral swelling
     Dosage: TAKE 20 MG BY MOUTH AS NEEDED. ;ONGOING: YES
     Route: 048
     Dates: start: 2020
  7. PFIZER-BIONTECH COVID-19 VACCINE [Concomitant]
     Active Substance: TOZINAMERAN
     Indication: COVID-19
     Dosage: NO
     Route: 030
     Dates: start: 20210407, end: 20210407
  8. PFIZER-BIONTECH COVID-19 VACCINE [Concomitant]
     Active Substance: TOZINAMERAN
     Dosage: NO
     Route: 030
     Dates: start: 20210505, end: 20210505
  9. PFIZER-BIONTECH COVID-19 VACCINE [Concomitant]
     Active Substance: TOZINAMERAN
     Dosage: NO
     Route: 030
     Dates: start: 20211123, end: 20211123

REACTIONS (13)
  - Somnolence [Recovered/Resolved]
  - Fluid intake reduced [Recovered/Resolved]
  - Decreased appetite [Recovered/Resolved]
  - Pain [Recovered/Resolved]
  - Urinary tract infection [Not Recovered/Not Resolved]
  - COVID-19 [Recovering/Resolving]
  - Blood pressure increased [Recovered/Resolved]
  - Urine abnormality [Not Recovered/Not Resolved]
  - Headache [Unknown]
  - Glaucoma [Unknown]
  - Dry eye [Unknown]
  - Peripheral swelling [Unknown]
  - Multiple sclerosis relapse [Recovered/Resolved]

NARRATIVE: CASE EVENT DATE: 20190801
